FAERS Safety Report 15288166 (Version 3)
Quarter: 2019Q1

REPORT INFORMATION
  Report Type: Report from Study
  Country: US (occurrence: US)
  Receive Date: 20180817
  Receipt Date: 20190313
  Transmission Date: 20190417
  Serious: Yes (Hospitalization, Other)
  Sender: FDA-Public Use
  Company Number: PHEH2018US033167

PATIENT
  Sex: Male

DRUGS (4)
  1. ENTRESTO [Suspect]
     Active Substance: SACUBITRIL\VALSARTAN
     Dosage: 50 MG, BID (24 MG OF SACUBITRIL, 26 MG OF VALSARTAN)
     Route: 048
  2. ENTRESTO [Suspect]
     Active Substance: SACUBITRIL\VALSARTAN
     Indication: CARDIAC DISORDER
     Dosage: 100 MG, BID (49 MG OF SACUBITRIL, 51 MG OF VALSARTAN)
     Route: 048
  3. ENTRESTO [Suspect]
     Active Substance: SACUBITRIL\VALSARTAN
     Dosage: 100 MG, BID (49 MG OF SACUBITRIL, 51 MG OF VALSARTAN)
     Route: 048
  4. ENTRESTO [Suspect]
     Active Substance: SACUBITRIL\VALSARTAN
     Indication: HYPERTENSION
     Dosage: 50 MG, BID (24 MG OF SACUBITRIL, 26 MG OF VALSARTAN)
     Route: 048

REACTIONS (4)
  - Loss of consciousness [Unknown]
  - Coronary artery occlusion [Unknown]
  - Hypotension [Unknown]
  - Product use in unapproved indication [Unknown]
